FAERS Safety Report 4881210-6 (Version None)
Quarter: 2006Q1

REPORT INFORMATION
  Report Type: 
  Country: None (occurrence: None)
  Receive Date: 20060112
  Receipt Date: 20060103
  Transmission Date: 20060701
  Serious: Yes (Hospitalization)
  Sender: FDA-Public Use
  Company Number: 164246

PATIENT
  Age: 47 Year
  Sex: Female
  Weight: 136.0791 kg

DRUGS (1)
  1. AVONEX [Suspect]
     Indication: MULTIPLE SCLEROSIS
     Dosage: 30 UG; QW; IM
     Route: 030
     Dates: start: 20000713

REACTIONS (8)
  - ABASIA [None]
  - ANKLE FRACTURE [None]
  - COLECTOMY [None]
  - DEHYDRATION [None]
  - DEPRESSION [None]
  - INCISION SITE COMPLICATION [None]
  - MUSCLE ATROPHY [None]
  - WOUND DEHISCENCE [None]
